FAERS Safety Report 14223642 (Version 2)
Quarter: 2017Q4

REPORT INFORMATION
  Report Type: Report from Study
  Country: BR (occurrence: BR)
  Receive Date: 20171124
  Receipt Date: 20171212
  Transmission Date: 20180321
  Serious: Yes (Hospitalization, Other)
  Sender: FDA-Public Use
  Company Number: PHHY2017BR173165

PATIENT
  Sex: Female
  Weight: 95 kg

DRUGS (4)
  1. DIOVAN [Suspect]
     Active Substance: VALSARTAN
     Dosage: 80 MG, QD
     Route: 048
  2. XARELTO [Concomitant]
     Active Substance: RIVAROXABAN
     Indication: PROPHYLAXIS
     Dosage: 1 DF, QD 5 YEARS AGO
     Route: 048
  3. DAFORIN [Concomitant]
     Active Substance: FLUOXETINE HYDROCHLORIDE
     Indication: PRODUCT USED FOR UNKNOWN INDICATION
     Dosage: 1 DF, QD 10 YEARS
     Route: 048
  4. DIOVAN [Suspect]
     Active Substance: VALSARTAN
     Indication: PRODUCT USED FOR UNKNOWN INDICATION
     Dosage: 160 MG, QD (AT NIGHT)
     Route: 065

REACTIONS (4)
  - Blood pressure fluctuation [Recovered/Resolved]
  - Parkinson^s disease [Not Recovered/Not Resolved]
  - Gait inability [Unknown]
  - Pulmonary embolism [Recovered/Resolved]
